FAERS Safety Report 9770431 (Version 1)
Quarter: 2013Q4

REPORT INFORMATION
  Report Type: Spontaneous
  Country: US (occurrence: US)
  Receive Date: 20131218
  Receipt Date: 20131218
  Transmission Date: 20140711
  Serious: No
  Sender: FDA-Public Use
  Company Number: US-TEVA-450781USA

PATIENT
  Age: 73 Year
  Sex: Female

DRUGS (14)
  1. NUVIGIL [Suspect]
     Dosage: 150 MILLIGRAM DAILY;
     Route: 048
  2. NUVIGIL [Suspect]
     Dosage: 250 MILLIGRAM DAILY;
     Route: 048
  3. CRESTOR [Concomitant]
  4. NOVOLOG [Concomitant]
  5. NEXIUM [Concomitant]
  6. LEVEMIR [Concomitant]
  7. BENAZEPRIL [Concomitant]
  8. ASPIRIN [Concomitant]
  9. CARTIA XT [Concomitant]
  10. CLONIDINE [Concomitant]
  11. DIOVAN [Concomitant]
  12. CYMBALTA [Concomitant]
  13. HYDROCHLOROTHIAZIDE [Concomitant]
  14. ISOSORBIDE [Concomitant]

REACTIONS (1)
  - Sleep disorder [Unknown]
